FAERS Safety Report 4651210-X (Version None)
Quarter: 2005Q2

REPORT INFORMATION
  Report Type: 
  Country: None (occurrence: None)
  Receive Date: 20050503
  Receipt Date: 20050420
  Transmission Date: 20051028
  Serious: Yes (Other)
  Sender: FDA-Public Use
  Company Number: PHEH2005US04769

PATIENT
  Age: 50 Year
  Sex: Male
  Weight: 148 kg

DRUGS (2)
  1. DIOVAN HCT [Suspect]
     Indication: HYPERTENSION
     Dosage: ONE TABLET 80/12.5 MG DAILY
     Route: 048
     Dates: start: 20041210, end: 20050329
  2. DIOVAN HCT [Suspect]
     Dosage: 160/25 MG DAILY
     Route: 048
     Dates: start: 20050330, end: 20050407

REACTIONS (3)
  - CONFUSIONAL STATE [None]
  - DIZZINESS [None]
  - IMPAIRED DRIVING ABILITY [None]
